FAERS Safety Report 7027390-8 (Version None)
Quarter: 2010Q4

REPORT INFORMATION
  Report Type: 
  Country: None (occurrence: None)
  Receive Date: 20101004
  Receipt Date: 20100928
  Transmission Date: 20110411
  Serious: Yes (Hospitalization, Other)
  Sender: FDA-Public Use
  Company Number: US-B.I. PHARMACEUTICALS,INC./RIDGEFIELD-2010-BP-10922BP

PATIENT
  Age: 87 Year
  Sex: Male

DRUGS (6)
  1. AGGRENOX [Suspect]
     Indication: TRANSIENT ISCHAEMIC ATTACK
     Dosage: STRENGTH: 25 MG/200 MG;DAILY DOSE: 50 MG/400 MG
     Route: 048
     Dates: start: 20010101
  2. METOPROLOL TARTRATE [Concomitant]
     Indication: ATRIAL FIBRILLATION
  3. FINASTERIDE [Concomitant]
     Indication: BENIGN PROSTATIC HYPERPLASIA
  4. SIMVASTATIN [Concomitant]
     Indication: BLOOD CHOLESTEROL INCREASED
  5. HYDRALAZINE HCL [Concomitant]
     Indication: HYPERTENSION
  6. VITAMIN TAB [Concomitant]
     Indication: PROPHYLAXIS

REACTIONS (6)
  - CONTUSION [None]
  - DIZZINESS [None]
  - GASTRIC CANCER [None]
  - LOSS OF CONSCIOUSNESS [None]
  - PERIPHERAL COLDNESS [None]
  - SKIN DISCOLOURATION [None]
